FAERS Safety Report 5015229-1 (Version None)
Quarter: 2006Q2

REPORT INFORMATION
  Report Type: 
  Country: None (occurrence: None)
  Receive Date: 20060425
  Receipt Date: 20060327
  Transmission Date: 20061013
  Serious: No
  Sender: FDA-Public Use
  Company Number: 223483

PATIENT
  Age: 56 Year
  Sex: Female

DRUGS (1)
  1. XOLAIR [Suspect]
     Dosage: 300 MG, Q4W,
     Dates: start: 20030807

REACTIONS (3)
  - PAIN [None]
  - SPUTUM DISCOLOURED [None]
  - WHEEZING [None]
